FAERS Safety Report 21042167 (Version 5)
Quarter: 2025Q3

REPORT INFORMATION
  Report Type: Report from Study
  Country: IN (occurrence: IN)
  Receive Date: 20220705
  Receipt Date: 20250926
  Transmission Date: 20251020
  Serious: Yes (Hospitalization, Other)
  Sender: NOVARTIS
  Company Number: IN-NOVARTISPH-NVSC2021IN228562

PATIENT
  Age: 66 Year
  Sex: Female

DRUGS (3)
  1. RIBOCICLIB [Suspect]
     Active Substance: RIBOCICLIB
     Indication: Breast cancer metastatic
     Dosage: 600 MG, QD
     Route: 048
     Dates: start: 20210726, end: 20210915
  2. RIBOCICLIB [Suspect]
     Active Substance: RIBOCICLIB
     Indication: Breast cancer
     Dosage: 600 MG, QD
     Route: 048
     Dates: start: 202206
  3. RIBOCICLIB [Suspect]
     Active Substance: RIBOCICLIB
     Indication: Hormone receptor positive HER2 negative breast cancer

REACTIONS (9)
  - Renal failure [Recovered/Resolved]
  - Nephrolithiasis [Recovered/Resolved]
  - Hydronephrosis [Unknown]
  - SARS-CoV-2 test positive [Recovered/Resolved]
  - Pyrexia [Recovered/Resolved]
  - Neutrophil count decreased [Recovered/Resolved]
  - Urethritis noninfective [Unknown]
  - Positron emission tomogram abnormal [Unknown]
  - Eastern Cooperative Oncology Group performance status abnormal [Unknown]

NARRATIVE: CASE EVENT DATE: 20210913
